FAERS Safety Report 6253713-3 (Version None)
Quarter: 2009Q2

REPORT INFORMATION
  Report Type: 
  Country: None (occurrence: None)
  Receive Date: 20090630
  Receipt Date: 20090617
  Transmission Date: 20091009
  Serious: Yes (Hospitalization)
  Sender: FDA-Public Use
  Company Number: 2009S1004898

PATIENT
  Age: 53 Year
  Sex: Female

DRUGS (1)
  1. PHOSPHOSODA FLAVOR NOT SPECIFIED [Suspect]
     Indication: COLONOSCOPY
     Dosage: 90 ML; TOTAL; PO
     Route: 048
     Dates: start: 20070723

REACTIONS (9)
  - ABDOMINAL PAIN [None]
  - ANAEMIA [None]
  - DYSGEUSIA [None]
  - GAIT DISTURBANCE [None]
  - HAEMODIALYSIS [None]
  - MYALGIA [None]
  - NEPHROCALCINOSIS [None]
  - RENAL FAILURE ACUTE [None]
  - SYNCOPE [None]
